FAERS Safety Report 6308900 (Version 2)
Quarter: 2021Q2

REPORT INFORMATION
  Report Type: Spontaneous
  Country: IT (occurrence: IT)
  Receive Date: 20070510
  Receipt Date: 20210402
  Transmission Date: 20210717
  Serious: Yes (Hospitalization)
  Sender: FDA-Public Use
  Company Number: IT-ASTRAZENECA-2007AC00800

PATIENT
  Age: 64 Year
  Sex: Male

DRUGS (6)
  1. METOPROLOL. [Concomitant]
     Active Substance: METOPROLOL
  2. RAMIPRIL. [Concomitant]
     Active Substance: RAMIPRIL
  3. ROSUVASTATIN. [Suspect]
     Active Substance: ROSUVASTATIN
     Route: 048
  4. ASPIRIN. [Concomitant]
     Active Substance: ASPIRIN
  5. ATORVASTATIN [Suspect]
     Active Substance: ATORVASTATIN
     Dosage: STOPPED TREATMENT DUE TO ITCHING SKIN RASH
     Route: 065
  6. CLOPIDOGREL [Concomitant]
     Active Substance: CLOPIDOGREL BISULFATE

REACTIONS (1)
  - Hepatotoxicity [Recovered/Resolved]
